FAERS Safety Report 5593821-3 (Version None)
Quarter: 2008Q1

REPORT INFORMATION
  Report Type: 
  Country: None (occurrence: None)
  Receive Date: 20080116
  Receipt Date: 20071226
  Transmission Date: 20080703
  Serious: No
  Sender: FDA-Public Use
  Company Number: US-BOEHRINGER INGELHEIM PHARMACEUTICALS, INC.-2007-BP-26813BP

PATIENT
  Age: 69 Year
  Sex: Female

DRUGS (3)
  1. MIRAPEX [Suspect]
     Indication: PARKINSON'S DISEASE
     Route: 048
     Dates: start: 20061201
  2. AZILECT [Concomitant]
     Indication: PARKINSON'S DISEASE
     Route: 048
  3. CARBIDOPA [Concomitant]
     Indication: PARKINSON'S DISEASE

REACTIONS (2)
  - SOMNOLENCE [None]
  - URINARY INCONTINENCE [None]
